FAERS Safety Report 21806452 (Version 1)
Quarter: 2023Q1

REPORT INFORMATION
  Report Type: Report from Study
  Country: US (occurrence: US)
  Receive Date: 20230102
  Receipt Date: 20230102
  Transmission Date: 20230417
  Serious: Yes (Hospitalization, Other)
  Sender: FDA-Public Use
  Company Number: US-JNJFOC-20221252024

PATIENT
  Age: 5 Decade
  Sex: Female
  Weight: 55.388 kg

DRUGS (2)
  1. SPRAVATO [Suspect]
     Active Substance: ESKETAMINE
     Indication: Depression
     Dosage: ^56 MG, 6 TOTAL DOSES^
     Dates: start: 20210615, end: 20210921
  2. SPRAVATO [Suspect]
     Active Substance: ESKETAMINE
     Dosage: ^84 MG, 32 TOTAL DOSES^
     Dates: start: 20210924, end: 20221220

REACTIONS (7)
  - Near death experience [Unknown]
  - Multiple organ dysfunction syndrome [Recovering/Resolving]
  - Surgery [Unknown]
  - Gastritis bacterial [Recovering/Resolving]
  - Depression [Recovering/Resolving]
  - Feeling abnormal [Recovered/Resolved]
  - Product dose omission issue [Unknown]

NARRATIVE: CASE EVENT DATE: 20220101
